FAERS Safety Report 5703212-X (Version None)
Quarter: 2008Q2

REPORT INFORMATION
  Report Type: 
  Country: None (occurrence: None)
  Receive Date: 20080411
  Receipt Date: 20080317
  Transmission Date: 20081010
  Serious: No
  Sender: FDA-Public Use
  Company Number: US-BAYER-200817433NA

PATIENT
  Age: 23 Year
  Sex: Female
  Weight: 125 kg

DRUGS (1)
  1. YAZ [Suspect]
     Indication: ORAL CONTRACEPTION
     Route: 048
     Dates: start: 20071201

REACTIONS (3)
  - MENORRHAGIA [None]
  - MENSTRUATION DELAYED [None]
  - METRORRHAGIA [None]
